FAERS Safety Report 7119986-X (Version None)
Quarter: 2010Q4

REPORT INFORMATION
  Report Type: 
  Country: None (occurrence: None)
  Receive Date: 20101123
  Receipt Date: 20101115
  Transmission Date: 20110411
  Serious: Yes (Other)
  Sender: FDA-Public Use
  Company Number: FR-PFIZER INC-2010147900

PATIENT
  Age: 46 Year
  Sex: Female

DRUGS (1)
  1. LYRICA [Suspect]
     Indication: NERVE COMPRESSION
     Dosage: UNK
     Dates: start: 20100101, end: 20100601

REACTIONS (12)
  - AMENORRHOEA [None]
  - ARTHRALGIA [None]
  - BURNING SENSATION [None]
  - DIABETES MELLITUS [None]
  - INSOMNIA [None]
  - JOINT DISLOCATION [None]
  - MUSCULAR WEAKNESS [None]
  - MUSCULOSKELETAL STIFFNESS [None]
  - MYALGIA [None]
  - PALPITATIONS [None]
  - SENSATION OF HEAVINESS [None]
  - VISUAL IMPAIRMENT [None]
